FAERS Safety Report 11196836 (Version 1)
Quarter: 2015Q2

REPORT INFORMATION
  Report Type: Spontaneous
  Country: US (occurrence: US)
  Receive Date: 20150617
  Receipt Date: 20150617
  Transmission Date: 20150821
  Serious: Yes (Other)
  Sender: FDA-Public Use
  Company Number: US-DRREDDYS-USA/USA/15/0048698

PATIENT
  Age: 53 Year
  Sex: Female

DRUGS (2)
  1. RISPERIDONE TABLETS [Suspect]
     Active Substance: RISPERIDONE
     Indication: DELUSION
  2. RISPERIDONE TABLETS [Suspect]
     Active Substance: RISPERIDONE
     Indication: ABNORMAL BEHAVIOUR

REACTIONS (8)
  - Confusional state [Recovering/Resolving]
  - Gait disturbance [Recovering/Resolving]
  - Hallucination, visual [Recovering/Resolving]
  - Disorientation [Recovering/Resolving]
  - Agitation [Recovering/Resolving]
  - Delirium [Recovering/Resolving]
  - Cognitive disorder [Recovering/Resolving]
  - Amnesia [Recovering/Resolving]
